FAERS Safety Report 6368637-0 (Version None)
Quarter: 2009Q3

REPORT INFORMATION
  Report Type: 
  Country: None (occurrence: None)
  Receive Date: 20090922
  Receipt Date: 20090910
  Transmission Date: 20100115
  Serious: Yes (Hospitalization, Other)
  Sender: FDA-Public Use
  Company Number: AU-PFIZER INC-2009245592

PATIENT
  Age: 56 Year

DRUGS (3)
  1. VORICONAZOLE [Suspect]
     Indication: SCEDOSPORIUM INFECTION
     Dosage: 200 MG, 2X/DAY
     Route: 048
  2. VORICONAZOLE [Suspect]
     Dosage: 200 MG, 3X/DAY
  3. VORICONAZOLE [Suspect]
     Route: 042

REACTIONS (4)
  - DRUG LEVEL DECREASED [None]
  - NEUROTOXICITY [None]
  - POLYOMAVIRUS-ASSOCIATED NEPHROPATHY [None]
  - SCEDOSPORIUM INFECTION [None]
